FAERS Safety Report 16667646 (Version 2)
Quarter: 2019Q3

REPORT INFORMATION
  Report Type: Spontaneous
  Country: US (occurrence: US)
  Receive Date: 20190805
  Receipt Date: 20190807
  Transmission Date: 20191004
  Serious: Yes (Other)
  Sender: FDA-Public Use
  Company Number: US-GLENMARK PHARMACEUTICALS-2019GMK042235

PATIENT

DRUGS (2)
  1. ATOVAQUONE AND PROGUANIL HYDROCHLORIDE TABLETS, 250 MG / 100 MG [Suspect]
     Active Substance: ATOVAQUONE\PROGUANIL HYDROCHLORIDE
     Dosage: 1 DF, OD
     Route: 048
     Dates: start: 20190227, end: 20190307
  2. ATOVAQUONE AND PROGUANIL HYDROCHLORIDE TABLETS, 250 MG / 100 MG [Suspect]
     Active Substance: ATOVAQUONE\PROGUANIL HYDROCHLORIDE
     Indication: MALARIA PROPHYLAXIS
     Dosage: 1 DF, OD
     Route: 048
     Dates: start: 2017, end: 20190307

REACTIONS (6)
  - Taste disorder [Recovered/Resolved]
  - Oesophagitis [Recovered/Resolved]
  - Gastritis [Recovered/Resolved]
  - Dyspepsia [Recovered/Resolved]
  - Decreased appetite [Recovered/Resolved]
  - Weight decreased [Recovered/Resolved]

NARRATIVE: CASE EVENT DATE: 2017
